FAERS Safety Report 10060668 (Version 3)
Quarter: 2014Q2

REPORT INFORMATION
  Report Type: Spontaneous
  Country: CO (occurrence: CO)
  Receive Date: 20140404
  Receipt Date: 20140414
  Transmission Date: 20141212
  Serious: Yes (Death, Hospitalization, Other)
  Sender: FDA-Public Use
  Company Number: PHHY2014CO041145

PATIENT
  Age: 90 Year
  Sex: Male
  Weight: 64 kg

DRUGS (5)
  1. EXELON PATCH [Suspect]
     Indication: DEMENTIA ALZHEIMER^S TYPE
     Dosage: 4.9 MG, DAILY
     Route: 062
     Dates: start: 20131217, end: 201401
  2. ASPIRINE [Concomitant]
     Indication: HYPERTENSION
     Dosage: UNK UKN, UNK
     Route: 048
  3. ENALAPRIL [Concomitant]
     Indication: HYPERTENSION
     Dosage: UNK UKN, UNK
     Route: 048
  4. CARVEDILOL [Concomitant]
     Indication: ATRIAL FIBRILLATION
     Dosage: UNK UKN, UNK
     Route: 048
  5. CLOZAPINE [Concomitant]
     Indication: INSOMNIA
     Dosage: UNK UKN, UNK
     Route: 048

REACTIONS (5)
  - Hypovolaemic shock [Fatal]
  - Haematemesis [Fatal]
  - Stevens-Johnson syndrome [Unknown]
  - Burns second degree [Not Recovered/Not Resolved]
  - Loss of consciousness [Unknown]
